FAERS Safety Report 13687796 (Version 1)
Quarter: 2017Q2

REPORT INFORMATION
  Report Type: Spontaneous
  Country: US (occurrence: US)
  Receive Date: 20170623
  Receipt Date: 20170623
  Transmission Date: 20170830
  Serious: Yes (Life-Threatening)
  Sender: FDA-Public Use
  Company Number: None

PATIENT
  Age: 3 Month
  Sex: Female
  Weight: 72 kg

DRUGS (17)
  1. THEO-DUR [Concomitant]
     Active Substance: THEOPHYLLINE ANHYDROUS
  2. ASMANEX [Concomitant]
     Active Substance: MOMETASONE FUROATE
  3. ELIQUIS [Concomitant]
     Active Substance: APIXABAN
  4. ALBUTEROL. [Concomitant]
     Active Substance: ALBUTEROL
  5. MAGNESIUM ABSORBATE [Concomitant]
  6. CALCIUM VITAMIN D [Concomitant]
     Active Substance: CALCIUM\VITAMIN D
  7. FORADIL [Concomitant]
     Active Substance: FORMOTEROL FUMARATE
  8. SPIRIVA [Concomitant]
     Active Substance: TIOTROPIUM BROMIDE MONOHYDRATE
  9. ECHINEACA [Concomitant]
  10. DYCLOMINE [Concomitant]
  11. POTASSIUM [Concomitant]
     Active Substance: POTASSIUM
  12. ZINC-EASE [Concomitant]
  13. BETAXOLOL. [Concomitant]
     Active Substance: BETAXOLOL
  14. ASPRIN [Concomitant]
     Active Substance: ASPIRIN
  15. ANTIVERT [Concomitant]
     Active Substance: MECLIZINE HYDROCHLORIDE
  16. MULTIVITAMIN/MINERAL [Concomitant]
  17. KETAMINE [Suspect]
     Active Substance: KETAMINE
     Indication: SURGERY
     Dates: start: 20170621, end: 20170621

REACTIONS (10)
  - Photopsia [None]
  - Suicidal ideation [None]
  - Movement disorder [None]
  - Vertigo [None]
  - Insomnia [None]
  - Crying [None]
  - Screaming [None]
  - Abnormal behaviour [None]
  - Anger [None]
  - Agitation [None]

NARRATIVE: CASE EVENT DATE: 20170621
